FAERS Safety Report 16952931 (Version 2)
Quarter: 2020Q1

REPORT INFORMATION
  Report Type: Spontaneous
  Country: US (occurrence: US)
  Receive Date: 20191023
  Receipt Date: 20200103
  Transmission Date: 20200409
  Serious: Yes (Hospitalization)
  Sender: FDA-Public Use
  Company Number: NVSC2019US007152

PATIENT
  Age: 63 Year
  Sex: Male
  Weight: 127.89 kg

DRUGS (1)
  1. ENTRESTO [Suspect]
     Active Substance: SACUBITRIL\VALSARTAN
     Indication: CARDIAC FAILURE CONGESTIVE
     Dosage: 50 MG, BID
     Route: 048
     Dates: start: 20171022

REACTIONS (7)
  - Dyspnoea [Recovered/Resolved]
  - Dyspnoea [Recovered/Resolved]
  - Respiratory distress [Unknown]
  - Oedema peripheral [Not Recovered/Not Resolved]
  - Fluid overload [Recovered/Resolved]
  - Fluid retention [Recovered/Resolved]
  - Polyuria [Recovering/Resolving]

NARRATIVE: CASE EVENT DATE: 20180513
